FAERS Safety Report 8064319-8 (Version None)
Quarter: 2012Q1

REPORT INFORMATION
  Report Type: 
  Country: None (occurrence: None)
  Receive Date: 20120123
  Receipt Date: 20120119
  Transmission Date: 20120608
  Serious: Yes (Other)
  Sender: FDA-Public Use
  Company Number: US-TEVA-318393USA

PATIENT
  Sex: Female

DRUGS (2)
  1. CLARAVIS [Suspect]
     Route: 048
  2. CLARAVIS [Suspect]
     Route: 048

REACTIONS (17)
  - SELF INJURIOUS BEHAVIOUR [None]
  - POLLAKIURIA [None]
  - NAUSEA [None]
  - DECREASED APPETITE [None]
  - SUICIDAL IDEATION [None]
  - DEPRESSION [None]
  - IRRITABILITY [None]
  - VISION BLURRED [None]
  - DYSPNOEA [None]
  - AGGRESSION [None]
  - DIZZINESS [None]
  - BACK PAIN [None]
  - DISTURBANCE IN ATTENTION [None]
  - HEADACHE [None]
  - TINNITUS [None]
  - INSOMNIA [None]
  - ABDOMINAL PAIN UPPER [None]
